FAERS Safety Report 21225796 (Version 1)
Quarter: 2022Q3

REPORT INFORMATION
  Report Type: Spontaneous
  Country: US (occurrence: US)
  Receive Date: 20220818
  Receipt Date: 20220818
  Transmission Date: 20221026
  Serious: No
  Sender: FDA-Public Use
  Company Number: US-ELI_LILLY_AND_COMPANY-US202207006234

PATIENT
  Sex: Male

DRUGS (5)
  1. EMGALITY [Suspect]
     Active Substance: GALCANEZUMAB-GNLM
     Indication: Migraine
     Dosage: 240 MG, SINGLE LOADING DOSE
     Route: 058
     Dates: start: 20220712
  2. VALIUM [Concomitant]
     Active Substance: DIAZEPAM
     Indication: Migraine
     Dosage: 10 MG, QID
     Route: 065
  3. IRON [Concomitant]
     Active Substance: IRON
     Indication: Product used for unknown indication
     Dosage: UNK, UNKNOWN
     Route: 042
  4. BENADRYL [Concomitant]
     Active Substance: DIPHENHYDRAMINE HYDROCHLORIDE
     Indication: Hypersensitivity
     Dosage: UNK, UNKNOWN
     Route: 042
  5. TESTOSTERONE [Concomitant]
     Active Substance: TESTOSTERONE
     Indication: Product used for unknown indication

REACTIONS (6)
  - Dizziness [Unknown]
  - Muscular weakness [Unknown]
  - Tremor [Unknown]
  - Decreased appetite [Unknown]
  - Dyspnoea [Unknown]
  - Drug ineffective [Unknown]
